FAERS Safety Report 19723614 (Version 1)
Quarter: 2021Q3

REPORT INFORMATION
  Report Type: Report from Study
  Country: US (occurrence: US)
  Receive Date: 20210819
  Receipt Date: 20210819
  Transmission Date: 20211014
  Serious: Yes (Other)
  Sender: FDA-Public Use
  Company Number: US-ALLERGAN-2128725US

PATIENT
  Sex: Female

DRUGS (1)
  1. LINACLOTIDE 145MCG CAP (TBD) [Suspect]
     Active Substance: LINACLOTIDE
     Indication: PRODUCT USED FOR UNKNOWN INDICATION
     Dosage: 145 ?G

REACTIONS (2)
  - Seizure [Unknown]
  - Blood sodium decreased [Unknown]
